FAERS Safety Report 22658383 (Version 1)
Quarter: 2023Q2

REPORT INFORMATION
  Report Type: Report from Study
  Country: DE (occurrence: DE)
  Receive Date: 20230630
  Receipt Date: 20230630
  Transmission Date: 20230721
  Serious: Yes (Hospitalization)
  Sender: FDA-Public Use
  Company Number: DE-CELLTRION INC.-2023DE012837

PATIENT

DRUGS (22)
  1. TRUXIMA [Suspect]
     Active Substance: RITUXIMAB-ABBS
     Indication: Rheumatoid arthritis
     Dosage: 1000 MILLIGRAM
     Dates: start: 201801
  2. MABTHERA [Suspect]
     Active Substance: RITUXIMAB
     Indication: Rheumatoid arthritis
     Dosage: 1000 MILLIGRAM
     Dates: start: 201601
  3. MABTHERA [Suspect]
     Active Substance: RITUXIMAB
     Dosage: 1000 MILLIGRAM
     Dates: start: 201607
  4. MABTHERA [Suspect]
     Active Substance: RITUXIMAB
     Dosage: 1000 MILLIGRAM
     Dates: start: 201703
  5. RITUXIMAB [Suspect]
     Active Substance: RITUXIMAB
     Indication: Rheumatoid arthritis
     Dosage: 500 MILLIGRAM
     Dates: start: 201809
  6. RITUXIMAB [Suspect]
     Active Substance: RITUXIMAB
     Dosage: 1000 MILLIGRAM
     Dates: start: 201908
  7. RITUXIMAB [Suspect]
     Active Substance: RITUXIMAB
     Dosage: 1000 MILLIGRAM
     Dates: start: 202005
  8. RITUXIMAB [Suspect]
     Active Substance: RITUXIMAB
     Dosage: 500 MILLIGRAM
     Dates: start: 202106
  9. RITUXIMAB [Suspect]
     Active Substance: RITUXIMAB
     Dosage: 500 MILLIGRAM
     Dates: start: 202207
  10. METHOTREXATE [Suspect]
     Active Substance: METHOTREXATE
     Indication: Rheumatoid arthritis
     Dosage: 15 MILLIGRAM
     Dates: start: 20160115
  11. METHOTREXATE [Suspect]
     Active Substance: METHOTREXATE
     Dosage: 15 MILLIGRAM
     Dates: start: 20160309
  12. METHOTREXATE [Suspect]
     Active Substance: METHOTREXATE
     Dosage: 15 MILLIGRAM
     Dates: start: 20160705
  13. METHOTREXATE [Suspect]
     Active Substance: METHOTREXATE
     Dosage: 15 MILLIGRAM
     Dates: start: 20170117
  14. METHOTREXATE [Suspect]
     Active Substance: METHOTREXATE
     Dosage: 15 MILLIGRAM
     Dates: start: 20170613
  15. METHOTREXATE [Suspect]
     Active Substance: METHOTREXATE
     Dosage: 15 MILLIGRAM
     Dates: start: 20180123
  16. METHOTREXATE [Suspect]
     Active Substance: METHOTREXATE
     Dosage: 15 MILLIGRAM
     Dates: start: 20181002
  17. METHOTREXATE [Suspect]
     Active Substance: METHOTREXATE
     Dosage: 15 MILLIGRAM
     Dates: start: 20190806
  18. METHOTREXATE [Suspect]
     Active Substance: METHOTREXATE
     Dosage: 15 MILLIGRAM
     Dates: start: 20200218
  19. METHOTREXATE [Suspect]
     Active Substance: METHOTREXATE
     Dosage: 15 MILLIGRAM
     Dates: start: 20201013
  20. METHOTREXATE [Suspect]
     Active Substance: METHOTREXATE
     Dosage: 15 MILLIGRAM
     Dates: start: 20210121
  21. METHOTREXATE [Suspect]
     Active Substance: METHOTREXATE
     Dosage: 15 MILLIGRAM
     Dates: start: 20210623
  22. METHOTREXATE [Suspect]
     Active Substance: METHOTREXATE
     Dosage: 15 MILLIGRAM
     Dates: start: 20220725

REACTIONS (2)
  - Fibromyalgia [Unknown]
  - Tendon rupture [Unknown]

NARRATIVE: CASE EVENT DATE: 20220712
